FAERS Safety Report 25264935 (Version 1)
Quarter: 2025Q2

REPORT INFORMATION
  Report Type: Spontaneous
  Country: CH (occurrence: CH)
  Receive Date: 20250502
  Receipt Date: 20250502
  Transmission Date: 20250717
  Serious: Yes (Other)
  Sender: BRISTOL-MYERS SQUIBB COMPANY
  Company Number: CH-BRISTOL-MYERS SQUIBB COMPANY-2025-061826

PATIENT
  Age: 75 Year
  Sex: Male

DRUGS (2)
  1. OPDIVO [Suspect]
     Active Substance: NIVOLUMAB
     Indication: Nodular melanoma
     Dates: start: 20241219
  2. IPILIMUMAB [Suspect]
     Active Substance: IPILIMUMAB
     Indication: Nodular melanoma
     Dates: start: 20241219

REACTIONS (1)
  - Cytokine release syndrome [Unknown]
